FAERS Safety Report 9196642 (Version 2)
Quarter: 2013Q2

REPORT INFORMATION
  Report Type: Spontaneous
  Country: IT (occurrence: IT)
  Receive Date: 20130328
  Receipt Date: 20130402
  Transmission Date: 20140414
  Serious: Yes (Hospitalization)
  Sender: FDA-Public Use
  Company Number: IT-SANOFI-AVENTIS-2013SA028564

PATIENT
  Age: 44 Year
  Sex: Female

DRUGS (6)
  1. CITALOPRAM [Suspect]
     Indication: SUICIDE ATTEMPT
     Route: 048
     Dates: start: 20130310, end: 20130310
  2. METFORMIN HYDROCHLORIDE [Suspect]
     Indication: SUICIDE ATTEMPT
     Route: 048
     Dates: start: 20130310, end: 20130310
  3. AMARYL [Suspect]
     Indication: SUICIDE ATTEMPT
     Route: 048
     Dates: start: 20130310, end: 20130310
  4. MINIAS [Suspect]
     Indication: SUICIDE ATTEMPT
     Route: 048
     Dates: start: 20130310, end: 20130310
  5. HUMULIN [Suspect]
     Indication: SUICIDE ATTEMPT
     Route: 030
     Dates: start: 20130310, end: 20130310
  6. EN [Suspect]
     Indication: SUICIDE ATTEMPT
     Route: 048
     Dates: start: 20130310, end: 20130310

REACTIONS (2)
  - Toxicity to various agents [Recovering/Resolving]
  - Drug abuser [Unknown]
